FAERS Safety Report 4673489-0 (Version None)
Quarter: 2005Q2

REPORT INFORMATION
  Report Type: 
  Country: None (occurrence: None)
  Receive Date: 20050525
  Receipt Date: 20050519
  Transmission Date: 20051028
  Serious: Yes (Other)
  Sender: FDA-Public Use
  Company Number: US-GLAXOSMITHKLINE-A0559315A

PATIENT
  Age: 80 Year
  Sex: Female
  Weight: 53 kg

DRUGS (4)
  1. TUMS ULTRA TABLETS, ASSORTED FRUIT [Suspect]
     Route: 048
     Dates: start: 20010101
  2. EVISTA [Concomitant]
     Indication: OSTEOPOROSIS PROPHYLAXIS
     Route: 048
  3. FISH OIL [Concomitant]
     Route: 048
  4. MULTI-VITAMIN [Concomitant]

REACTIONS (3)
  - CHOKING [None]
  - DRUG ADMINISTRATION ERROR [None]
  - FOREIGN BODY TRAUMA [None]
